FAERS Safety Report 6613124-5 (Version None)
Quarter: 2010Q1

REPORT INFORMATION
  Report Type: 
  Country: None (occurrence: None)
  Receive Date: 20100304
  Receipt Date: 20100218
  Transmission Date: 20100710
  Serious: Yes (Hospitalization)
  Sender: FDA-Public Use
  Company Number: GB-RANBAXY-2010RR-31428

PATIENT
  Age: 15 Year
  Sex: Male

DRUGS (3)
  1. IBUPROFEN [Suspect]
     Indication: DRUG USE FOR UNKNOWN INDICATION
     Route: 048
  2. CONCERTA [Suspect]
     Indication: ATTENTION DEFICIT/HYPERACTIVITY DISORDER
     Dosage: 36 MG, UNK
     Route: 048
     Dates: start: 20050309
  3. CONCERTA [Suspect]
     Dosage: 72 MG, UNK
     Route: 048

REACTIONS (2)
  - OVERDOSE [None]
  - SINUS TACHYCARDIA [None]
